FAERS Safety Report 4300341-2 (Version None)
Quarter: 2004Q1

REPORT INFORMATION
  Report Type: 
  Country: None (occurrence: None)
  Receive Date: 20040218
  Receipt Date: 20040205
  Transmission Date: 20041129
  Serious: Yes (Hospitalization)
  Sender: FDA-Public Use
  Company Number: 2003016824

PATIENT
  Age: 40 Year
  Sex: Male
  Weight: 100 kg

DRUGS (4)
  1. ZELDOX (CAPSULES) (ZIPRASIDONE) [Suspect]
     Indication: BIPOLAR DISORDER
     Dosage: 100 MG ORAL
     Route: 048
     Dates: start: 20020901, end: 20021001
  2. VENLAFAXINE HCL [Concomitant]
  3. VALPROATE SODIUM [Concomitant]
  4. QUETIAPINE FUMARATE [Concomitant]

REACTIONS (1)
  - HYPOMANIA [None]
